FAERS Safety Report 5256094-7 (Version None)
Quarter: 2007Q1

REPORT INFORMATION
  Report Type: 
  Country: None (occurrence: None)
  Receive Date: 20070306
  Receipt Date: 20070227
  Transmission Date: 20070707
  Serious: Yes (Hospitalization)
  Sender: FDA-Public Use
  Company Number: US-JNJFOC-20070300176

PATIENT
  Sex: Male
  Weight: 63.5 kg

DRUGS (7)
  1. FENTANYL TRANSDERMAL SYSTEM [Suspect]
     Indication: BACK PAIN
     Route: 062
  2. VICODIN [Concomitant]
     Indication: PAIN
     Route: 048
  3. ZOLOFT [Concomitant]
     Indication: DEPRESSION
     Route: 048
  4. FAMOTIDINE [Concomitant]
     Route: 048
  5. REMERON [Concomitant]
     Indication: DEPRESSION
     Route: 048
  6. CLONIDINE [Concomitant]
     Indication: BLOOD PRESSURE
     Route: 048
  7. ATIVAN [Concomitant]
     Indication: HYPERTENSION
     Route: 048

REACTIONS (5)
  - BACK PAIN [None]
  - BURNING SENSATION [None]
  - DEPRESSION [None]
  - DISCOMFORT [None]
  - PNEUMONIA [None]
